FAERS Safety Report 5457171-8 (Version None)
Quarter: 2007Q3

REPORT INFORMATION
  Report Type: 
  Country: None (occurrence: None)
  Receive Date: 20070918
  Receipt Date: 20070903
  Transmission Date: 20080115
  Serious: Yes (Hospitalization)
  Sender: FDA-Public Use
  Company Number: NZ-GENENTECH-247807

PATIENT
  Sex: Male
  Weight: 76 kg

DRUGS (10)
  1. BEVACIZUMAB [Suspect]
     Indication: COLORECTAL CANCER METASTATIC
     Dosage: 355 MG, Q2W
     Route: 042
     Dates: start: 20070108, end: 20070816
  2. OXALIPLATIN [Suspect]
     Indication: COLORECTAL CANCER METASTATIC
     Dosage: 150 MG, Q2W
     Route: 042
     Dates: start: 20070108, end: 20070816
  3. OXALIPLATIN [Suspect]
     Dosage: 120 MG, Q2W
     Route: 042
     Dates: start: 20070816, end: 20070816
  4. FLUOROURACIL [Suspect]
     Indication: COLORECTAL CANCER METASTATIC
     Dosage: 700 MG, Q2W
     Route: 040
     Dates: start: 20070108, end: 20070816
  5. FLUOROURACIL [Suspect]
     Dosage: 1100 MG, Q2W
     Route: 042
     Dates: start: 20070108
  6. FLUOROURACIL [Suspect]
     Dosage: 550 MG, Q2W
     Route: 040
     Dates: start: 20070816, end: 20070816
  7. FLUOROURACIL [Suspect]
     Dosage: 900 MG, Q2W
     Route: 042
     Dates: start: 20070816, end: 20070816
  8. LEUCOVORIN CALCIUM [Suspect]
     Indication: COLORECTAL CANCER METASTATIC
     Dosage: 350 MG, Q2W
     Route: 042
     Dates: start: 20070108, end: 20070816
  9. ACCUPRIL [Concomitant]
     Indication: DRUG USE FOR UNKNOWN INDICATION
     Dates: start: 20070405
  10. FELODIPINE [Concomitant]
     Indication: DRUG USE FOR UNKNOWN INDICATION
     Dates: start: 20070405

REACTIONS (2)
  - FEBRILE NEUTROPENIA [None]
  - PYREXIA [None]
